FAERS Safety Report 25570742 (Version 1)
Quarter: 2025Q3

REPORT INFORMATION
  Report Type: Report from Study
  Country: EU (occurrence: EU)
  Receive Date: 20250717
  Receipt Date: 20250717
  Transmission Date: 20251021
  Serious: Yes (Other)
  Sender: TEVA
  Company Number: EU-TEVA-VS-3350446

PATIENT
  Sex: Male

DRUGS (4)
  1. METHOTREXATE [Suspect]
     Active Substance: METHOTREXATE
     Indication: Immunosuppressant drug therapy
     Route: 065
  2. PREDNISONE [Suspect]
     Active Substance: PREDNISONE
     Indication: Immunosuppressant drug therapy
     Route: 065
  3. ETANERCEPT [Suspect]
     Active Substance: ETANERCEPT
     Indication: Immunosuppressant drug therapy
     Route: 065
  4. VELUCOVACAP [Suspect]
     Active Substance: VELUCOVACAP
     Indication: COVID-19 immunisation
     Route: 065

REACTIONS (1)
  - VEXAS syndrome [Unknown]
